FAERS Safety Report 22136578 (Version 1)
Quarter: 2023Q1

REPORT INFORMATION
  Report Type: Spontaneous
  Country: US (occurrence: US)
  Receive Date: 20230324
  Receipt Date: 20230324
  Transmission Date: 20230417
  Serious: Yes (Other)
  Sender: FDA-Public Use
  Company Number: US-AMGEN-USASP2023048155

PATIENT
  Sex: Male

DRUGS (1)
  1. XGEVA [Suspect]
     Active Substance: DENOSUMAB
     Indication: Hypercalcaemia of malignancy
     Dosage: UNK
     Route: 065
     Dates: start: 20230113

REACTIONS (9)
  - Adrenal insufficiency [Unknown]
  - Small intestinal obstruction [Unknown]
  - Hypovolaemic shock [Unknown]
  - Hypokalaemia [Unknown]
  - Hypocalcaemia [Unknown]
  - Blood phosphorus decreased [Unknown]
  - Decreased appetite [Unknown]
  - Off label use [Unknown]
  - Taste disorder [Unknown]
